FAERS Safety Report 5279026-4 (Version None)
Quarter: 2007Q1

REPORT INFORMATION
  Report Type: 
  Country: None (occurrence: None)
  Receive Date: 20070328
  Receipt Date: 20061218
  Transmission Date: 20070707
  Serious: No
  Sender: FDA-Public Use
  Company Number: US-AMGEN-US156664

PATIENT
  Sex: Female
  Weight: 71.3 kg

DRUGS (7)
  1. NEULASTA [Suspect]
     Indication: CHEMOTHERAPY
     Route: 058
     Dates: start: 20050310
  2. ADRIAMYCIN PFS [Concomitant]
     Route: 065
     Dates: start: 20050308, end: 20050329
  3. CYTOXAN [Concomitant]
     Route: 065
     Dates: start: 20050308, end: 20050329
  4. ARANESP [Concomitant]
     Dates: start: 20050317, end: 20050407
  5. EMEND [Concomitant]
     Dates: start: 20050308, end: 20050329
  6. ALOXI [Concomitant]
     Dates: start: 20050308, end: 20050329
  7. DECADRON [Concomitant]
     Dates: start: 20050308, end: 20050329

REACTIONS (4)
  - BONE PAIN [None]
  - CHEST DISCOMFORT [None]
  - HEADACHE [None]
  - NEUTROPENIA [None]
